FAERS Safety Report 5854882-7 (Version None)
Quarter: 2008Q3

REPORT INFORMATION
  Report Type: 
  Country: None (occurrence: None)
  Receive Date: 20080822
  Receipt Date: 20080227
  Transmission Date: 20090109
  Serious: No
  Sender: FDA-Public Use
  Company Number: US-ABBOTT-08P-163-0440416-00

PATIENT
  Sex: Male
  Weight: 106.24 kg

DRUGS (6)
  1. SYNTHROID [Suspect]
     Indication: HYPOTHYROIDISM
     Route: 048
     Dates: start: 20040101, end: 20070901
  2. SYNTHROID [Suspect]
     Route: 048
     Dates: start: 20070901, end: 20071201
  3. SYNTHROID [Suspect]
     Route: 048
     Dates: start: 20020101, end: 20020101
  4. SYNTHROID [Suspect]
     Route: 048
     Dates: start: 20020101, end: 20040101
  5. RISPERDAL [Concomitant]
     Indication: DRUG USE FOR UNKNOWN INDICATION
     Route: 048
     Dates: start: 20040101
  6. LEVOTRIX [Concomitant]
     Indication: HYPOTHYROIDISM
     Dosage: NOT REPORTED

REACTIONS (2)
  - CONFUSIONAL STATE [None]
  - FEELING ABNORMAL [None]
